FAERS Safety Report 16908845 (Version 4)
Quarter: 2020Q2

REPORT INFORMATION
  Report Type: Spontaneous
  Country: US (occurrence: US)
  Receive Date: 20191011
  Receipt Date: 20200514
  Transmission Date: 20200713
  Serious: No
  Sender: FDA-Public Use
  Company Number: US-PFIZER INC-2016480641

PATIENT
  Age: 45 Year
  Sex: Female

DRUGS (12)
  1. APTIOM [Concomitant]
     Active Substance: ESLICARBAZEPINE ACETATE
     Dosage: 800 MG, 1X/DAY
     Dates: start: 20160916
  2. BACLOFEN. [Concomitant]
     Active Substance: BACLOFEN
     Dosage: 10 MG, 3X/DAY
  3. PHENYTOIN. [Concomitant]
     Active Substance: PHENYTOIN
     Dosage: UNK
  4. LYRICA [Suspect]
     Active Substance: PREGABALIN
     Dosage: 200 MG, 4X/DAY
  5. LYRICA [Suspect]
     Active Substance: PREGABALIN
     Dosage: 400 MG, 2X/DAY ((200MG CAPSULE, 2 CAPS, TWICE DAILY)
     Route: 048
  6. OXYCODONE AND ACETAMINOPHEN [Concomitant]
     Active Substance: ACETAMINOPHEN\OXYCODONE HYDROCHLORIDE
     Dosage: UNK, 3X/DAY [OXYCODONE HYDROCHLORIDE 10MG]/[PARACETAMOL 325 MG]
  7. LYRICA [Suspect]
     Active Substance: PREGABALIN
     Dosage: 225 MG, 2X/DAY
     Dates: start: 20130612
  8. APTIOM [Concomitant]
     Active Substance: ESLICARBAZEPINE ACETATE
     Dosage: 400 MG, UNK [FOR 4 DAYS]
  9. LYRICA [Suspect]
     Active Substance: PREGABALIN
     Dosage: 200 MG, 2X/DAY
     Route: 048
     Dates: start: 20170419
  10. LYRICA [Suspect]
     Active Substance: PREGABALIN
     Dosage: 400 MG, 2X/DAY (2 PO BID (TWICE A DAY))
     Route: 048
  11. OXYCODONE [Concomitant]
     Active Substance: OXYCODONE
     Dosage: 10 MG, UNK
  12. METOPROLOL SUCCINATE. [Concomitant]
     Active Substance: METOPROLOL SUCCINATE
     Dosage: 0.5 DF, 1X/DAY [0.5 TABLETS]

REACTIONS (2)
  - Weight increased [Unknown]
  - Prescribed overdose [Unknown]
